FAERS Safety Report 11516765 (Version 1)
Quarter: 2015Q3

REPORT INFORMATION
  Report Type: Spontaneous
  Country: US (occurrence: None)
  Receive Date: 20150916
  Receipt Date: 20150916
  Transmission Date: 20151125
  Serious: Yes (Hospitalization)
  Sender: FDA-Public Use
  Company Number: None

PATIENT
  Age: 62 Year
  Sex: Female
  Weight: 60.5 kg

DRUGS (15)
  1. HARVONI [Suspect]
     Active Substance: LEDIPASVIR\SOFOSBUVIR
     Indication: HEPATITIS C
     Dosage: 90/400 MG?QD?PO
     Route: 048
     Dates: start: 20150130, end: 20150715
  2. ESCITALOPRAM [Concomitant]
     Active Substance: ESCITALOPRAM OXALATE
  3. VITAMIN A [Concomitant]
     Active Substance: VITAMIN A
  4. XIFAXAN [Concomitant]
     Active Substance: RIFAXIMIN
  5. LANTUS [Concomitant]
     Active Substance: INSULIN GLARGINE
  6. LACTULOSE. [Concomitant]
     Active Substance: LACTULOSE
  7. AZELASTINE [Concomitant]
     Active Substance: AZELASTINE
  8. FUROSEMIDE. [Concomitant]
     Active Substance: FUROSEMIDE
  9. GLIPIZIDE. [Concomitant]
     Active Substance: GLIPIZIDE
  10. METFORMIN [Concomitant]
     Active Substance: METFORMIN HYDROCHLORIDE
  11. OMEPRAZOLE. [Concomitant]
     Active Substance: OMEPRAZOLE
  12. SPIRONOLACTONE. [Concomitant]
     Active Substance: SPIRONOLACTONE
  13. VITAMIN D [Concomitant]
     Active Substance: CHOLECALCIFEROL
  14. NADOLOL. [Concomitant]
     Active Substance: NADOLOL
  15. FLONASE [Concomitant]
     Active Substance: FLUTICASONE PROPIONATE

REACTIONS (3)
  - Orthostatic intolerance [None]
  - Fatigue [None]
  - Dyspnoea [None]

NARRATIVE: CASE EVENT DATE: 20150521
